FAERS Safety Report 9908822 (Version 1)
Quarter: 2014Q1

REPORT INFORMATION
  Report Type: Spontaneous
  Country: JP (occurrence: JP)
  Receive Date: 20140219
  Receipt Date: 20140219
  Transmission Date: 20141002
  Serious: Yes (Other)
  Sender: FDA-Public Use
  Company Number: JP-UCBSA-112886

PATIENT
  Age: 59 Year
  Sex: Female

DRUGS (3)
  1. CIMZIA [Suspect]
     Indication: RHEUMATOID ARTHRITIS
     Dosage: 200MG SYRINGE
     Route: 058
     Dates: start: 20140107, end: 20140204
  2. RHEUMATREX [Concomitant]
     Dosage: 2MG X 3CAPSULES
     Route: 048
     Dates: start: 2014
  3. RHEUMATREX [Concomitant]
     Dosage: 2MG X 5 CAPSULES
     Route: 048

REACTIONS (1)
  - Pneumonia [Unknown]
